FAERS Safety Report 9377775 (Version 1)
Quarter: 2013Q3

REPORT INFORMATION
  Report Type: Spontaneous
  Country: US (occurrence: US)
  Receive Date: 20130701
  Receipt Date: 20130701
  Transmission Date: 20140515
  Serious: Yes (Hospitalization)
  Sender: FDA-Public Use
  Company Number: PHHY2013US065557

PATIENT
  Sex: Female

DRUGS (11)
  1. REMIFENTANIL [Suspect]
     Dosage: MATERNAL DOSE OF 2 UG INITIALLY
     Route: 064
  2. REMIFENTANIL [Suspect]
     Dosage: MATERNAL DOSE OF 40 UG BOLUS DOSE
     Route: 064
  3. HEPARIN [Suspect]
     Route: 064
  4. FENTANYL [Suspect]
     Dosage: MATERNAL DOSE 150 MCG
     Route: 064
  5. SODIUM CHLORIDE SANDOZ [Suspect]
     Dosage: MATERNAL DOSE OF 500 ML
     Route: 064
  6. MISOPROSTOL [Suspect]
     Route: 064
  7. ETOMIDATE [Suspect]
     Dosage: MATERNAL DOSE OF 20 MG
     Route: 064
  8. SUCCINYLCHOLINE [Suspect]
     Dosage: MATERNAL DOSE OF 120 MG
     Route: 064
  9. MIDAZOLAM [Concomitant]
     Dosage: MATERNAL DOSE OF 4 MG
     Route: 064
  10. KETAMINE [Concomitant]
     Dosage: MATERNAL DOSE OF 20 MG
     Route: 064
  11. PROPOFOL [Concomitant]
     Dosage: MATERNAL DOSE OF 40 MG
     Route: 064

REACTIONS (4)
  - Foetal heart rate abnormal [Unknown]
  - Bradycardia foetal [Unknown]
  - Apgar score low [Unknown]
  - Foetal exposure during pregnancy [Unknown]
